FAERS Safety Report 6490892-7 (Version None)
Quarter: 2009Q4

REPORT INFORMATION
  Report Type: 
  Country: None (occurrence: None)
  Receive Date: 20091211
  Receipt Date: 20091203
  Transmission Date: 20100525
  Serious: Yes (Hospitalization)
  Sender: FDA-Public Use
  Company Number: TR-WATSON-2009-10393

PATIENT
  Age: 53 Year
  Sex: Female

DRUGS (5)
  1. DILTIA XT (WATSON LABORATORIES) [Suspect]
     Indication: HYPERTENSION
     Dosage: 30 MG, UNK
  2. DICLOFENAC (WATSON LABORATORIES) [Suspect]
     Indication: HEADACHE
     Dosage: UNK
  3. MEPHENOXALONE [Suspect]
     Indication: HEADACHE
     Dosage: 200 MG, UNK
  4. PARACETAMOL [Suspect]
     Indication: HEADACHE
  5. AMITRIPTYLINE [Suspect]
     Indication: HEADACHE

REACTIONS (1)
  - ACUTE GENERALISED EXANTHEMATOUS PUSTULOSIS [None]
